FAERS Safety Report 6401092-0 (Version None)
Quarter: 2009Q4

REPORT INFORMATION
  Report Type: 
  Country: None (occurrence: None)
  Receive Date: 20091015
  Receipt Date: 20091012
  Transmission Date: 20100525
  Serious: Yes (Hospitalization, Other)
  Sender: FDA-Public Use
  Company Number: CA-TEVA-212090USA

PATIENT
  Age: 72 Year
  Sex: Male

DRUGS (3)
  1. CARBOPLATIN [Suspect]
     Indication: SMALL CELL CARCINOMA
  2. CISPLATIN [Suspect]
     Indication: SMALL CELL CARCINOMA
  3. ETOPOSIDE [Suspect]
     Indication: SMALL CELL CARCINOMA

REACTIONS (3)
  - ABSCESS [None]
  - SEPSIS [None]
  - SMALL INTESTINAL PERFORATION [None]
